FAERS Safety Report 17224653 (Version 1)
Quarter: 2020Q1

REPORT INFORMATION
  Report Type: Spontaneous
  Country: US (occurrence: US)
  Receive Date: 20200102
  Receipt Date: 20200102
  Transmission Date: 20200409
  Serious: Yes (Other)
  Sender: FDA-Public Use
  Company Number: US-ABBVIE-19K-163-3213601-00

PATIENT
  Sex: Male
  Weight: 2.87 kg

DRUGS (1)
  1. HUMIRA [Suspect]
     Active Substance: ADALIMUMAB
     Indication: MATERNAL EXPOSURE TIMING UNSPECIFIED
     Route: 064

REACTIONS (4)
  - Developmental delay [Not Recovered/Not Resolved]
  - Foetal exposure during pregnancy [Unknown]
  - Speech disorder [Not Recovered/Not Resolved]
  - Dyspraxia [Recovering/Resolving]
